FAERS Safety Report 13857296 (Version 4)
Quarter: 2018Q1

REPORT INFORMATION
  Report Type: Report from Study
  Country: US (occurrence: US)
  Receive Date: 20170810
  Receipt Date: 20180125
  Transmission Date: 20180508
  Serious: No
  Sender: FDA-Public Use
  Company Number: US-AMGEN-USASL2017100476

PATIENT
  Sex: Male

DRUGS (2)
  1. REPATHA [Suspect]
     Active Substance: EVOLOCUMAB
     Indication: HYPERCHOLESTEROLAEMIA
     Dosage: 420 MG, QMO
     Route: 065
  2. REPATHA [Suspect]
     Active Substance: EVOLOCUMAB
     Dosage: 140 MG, Q2WK
     Route: 065

REACTIONS (8)
  - Flatulence [Recovered/Resolved]
  - Myalgia [Recovering/Resolving]
  - Muscle tightness [Recovering/Resolving]
  - Abdominal pain [Unknown]
  - Pain in extremity [Unknown]
  - Abdominal discomfort [Recovered/Resolved]
  - Burning sensation [Recovering/Resolving]
  - Musculoskeletal pain [Recovering/Resolving]
